FAERS Safety Report 20712148 (Version 1)
Quarter: 2022Q2

REPORT INFORMATION
  Report Type: Report from Study
  Country: US (occurrence: US)
  Receive Date: 20220414
  Receipt Date: 20220414
  Transmission Date: 20220720
  Serious: No
  Sender: FDA-Public Use
  Company Number: US-ACADIA PHARMACEUTICALS INC.-ACA-2022-PIM-001022

PATIENT
  Age: 80 Year
  Sex: Male
  Weight: 77 kg

DRUGS (15)
  1. NUPLAZID [Suspect]
     Active Substance: PIMAVANSERIN TARTRATE
     Dosage: 34 MILLIGRAM, QD
     Route: 065
     Dates: start: 20220320, end: 20220320
  2. MIDODRINE [Concomitant]
     Active Substance: MIDODRINE
     Dosage: ONE IN THE MORNING AND HALF AT NOOON
  3. FINASTERIDE [Concomitant]
     Active Substance: FINASTERIDE
     Dosage: QAM
  4. LEVOTHYROXINE [Concomitant]
     Active Substance: LEVOTHYROXINE
     Dosage: QAM
  5. OMEPRAZOLE [Concomitant]
     Active Substance: OMEPRAZOLE
     Dosage: BID
  6. CARBIDOPA\LEVODOPA [Concomitant]
     Active Substance: CARBIDOPA\LEVODOPA
     Dosage: 25/100, 5 TIMES A DAY (ONE AND A HALF AT 8 AM AND 2 PM, ONE AT 11AM AND 5 PM, ONE-HALF AT BEDTIME)
  7. ENTACAPONE [Concomitant]
     Active Substance: ENTACAPONE
     Dosage: 4 TIMES A DAY (8 AM, 11 AM, 2 PM, 5 PM)
  8. TYLENOL [Concomitant]
     Active Substance: ACETAMINOPHEN
     Dosage: BID (MORNING AND BEDTIME)
  9. STOOL SOFTENER (DOCUSATE) [Concomitant]
     Active Substance: DOCUSATE
     Dosage: QAM
  10. CHOLECALCIFEROL [Concomitant]
     Active Substance: CHOLECALCIFEROL
     Dosage: NOON
  11. ATORVASTATIN [Concomitant]
     Active Substance: ATORVASTATIN
     Dosage: QHS
  12. LISINOPRIL [Concomitant]
     Active Substance: LISINOPRIL
     Dosage: QHS
  13. GABAPENTIN [Concomitant]
     Active Substance: GABAPENTIN
     Dosage: QHS
  14. ASPIRIN [Concomitant]
     Active Substance: ASPIRIN
     Dosage: 81 QHS
  15. HUMALOG [Concomitant]
     Active Substance: INSULIN LISPRO

REACTIONS (6)
  - Gait inability [Recovering/Resolving]
  - Limb discomfort [Recovering/Resolving]
  - Insomnia [Recovering/Resolving]
  - Lethargy [Recovering/Resolving]
  - Agitation [Recovering/Resolving]
  - Confusional state [Recovering/Resolving]

NARRATIVE: CASE EVENT DATE: 20220320
